FAERS Safety Report 18904140 (Version 1)
Quarter: 2021Q1

REPORT INFORMATION
  Report Type: Spontaneous
  Country: NL (occurrence: NL)
  Receive Date: 20210217
  Receipt Date: 20210217
  Transmission Date: 20210420
  Serious: Yes (Death, Life-Threatening, Hospitalization, Other)
  Sender: FDA-Public Use
  Company Number: NL-AMGEN-NLDSP2021023210

PATIENT

DRUGS (3)
  1. ARA?C [Concomitant]
     Active Substance: CYTARABINE
     Indication: MYELODYSPLASTIC SYNDROME
     Dosage: 2000 MILLIGRAM/SQ. METER
     Route: 042
  2. ARA?C [Concomitant]
     Active Substance: CYTARABINE
     Indication: ACUTE MYELOID LEUKAEMIA
  3. NEUPOGEN [Suspect]
     Active Substance: FILGRASTIM
     Indication: PROPHYLAXIS
     Dosage: 5 MICROGRAM/KILOGRAM/D
     Route: 058

REACTIONS (13)
  - Death [Fatal]
  - Bone marrow failure [Fatal]
  - Skin toxicity [Unknown]
  - Infection [Unknown]
  - Gastrointestinal toxicity [Unknown]
  - Acute myeloid leukaemia [Unknown]
  - Cardiotoxicity [Unknown]
  - Haemorrhage [Unknown]
  - Hepatotoxicity [Unknown]
  - Thrombocytopenia [Unknown]
  - Sepsis [Unknown]
  - Adverse event [Unknown]
  - Neurotoxicity [Unknown]
